FAERS Safety Report 7077498-6 (Version None)
Quarter: 2010Q4

REPORT INFORMATION
  Report Type: 
  Country: None (occurrence: None)
  Receive Date: 20101101
  Receipt Date: 20101022
  Transmission Date: 20110411
  Serious: Yes (Hospitalization, Other)
  Sender: FDA-Public Use
  Company Number: US-ABBOTT-10P-163-0671294-00

PATIENT
  Sex: Female
  Weight: 51.302 kg

DRUGS (3)
  1. HUMIRA [Suspect]
     Indication: CROHN'S DISEASE
     Dates: start: 20100712
  2. UNKNOWN STEROIDS [Suspect]
     Indication: PRODUCT USED FOR UNKNOWN INDICATION
  3. MULTI-VITAMIN [Concomitant]
     Indication: PRODUCT USED FOR UNKNOWN INDICATION

REACTIONS (13)
  - ABDOMINAL PAIN LOWER [None]
  - ABDOMINAL PAIN UPPER [None]
  - BACK PAIN [None]
  - CONSTIPATION [None]
  - DRUG INEFFECTIVE [None]
  - ENTERITIS [None]
  - FREQUENT BOWEL MOVEMENTS [None]
  - HEPATIC ENZYME INCREASED [None]
  - MUSCLE SPASMS [None]
  - OVARIAN CYST RUPTURED [None]
  - PAIN [None]
  - SPINAL FRACTURE [None]
  - WHITE BLOOD CELL COUNT INCREASED [None]
